FAERS Safety Report 13015795 (Version 6)
Quarter: 2017Q3

REPORT INFORMATION
  Report Type: Spontaneous
  Country: IT (occurrence: IT)
  Receive Date: 20161212
  Receipt Date: 20170729
  Transmission Date: 20171127
  Serious: Yes (Other)
  Sender: FDA-Public Use
  Company Number: IT-ACCORD-046274

PATIENT
  Age: 40 Year
  Sex: Male
  Weight: 77 kg

DRUGS (2)
  1. CISPLATIN. [Suspect]
     Active Substance: CISPLATIN
     Indication: TESTIS CANCER
     Dosage: CISPLATIN/ETOPOSIDE (DAY 1-2-3-4-5) CYCLE 1.
     Route: 042
     Dates: start: 20160801
  2. ETOPOSIDE. [Suspect]
     Active Substance: ETOPOSIDE
     Indication: TESTIS CANCER
     Dosage: CISPLATIN/ETOPOSIDE (DAY 1-2-3-4-5) CYCLE 1
     Route: 042
     Dates: start: 20160801

REACTIONS (6)
  - Thrombocytopenia [Recovering/Resolving]
  - Neutropenia [Unknown]
  - Hypertransaminasaemia [Recovering/Resolving]
  - Vomiting [Recovering/Resolving]
  - Diarrhoea [Recovering/Resolving]
  - Nausea [Recovering/Resolving]

NARRATIVE: CASE EVENT DATE: 20160802
